FAERS Safety Report 4838321-0 (Version None)
Quarter: 2005Q4

REPORT INFORMATION
  Report Type: 
  Country: None (occurrence: None)
  Receive Date: 20051123
  Receipt Date: 20051114
  Transmission Date: 20060501
  Serious: Yes (Disabling, Other)
  Sender: FDA-Public Use
  Company Number: 12868

PATIENT
  Age: 66 Year
  Sex: Male

DRUGS (5)
  1. AMIODARONE [Suspect]
     Indication: ATRIAL FIBRILLATION
     Dosage: 200 MG  PO
     Route: 048
     Dates: start: 20031201, end: 20050928
  2. BISOPROLOL [Concomitant]
  3. RAMIPRIL [Concomitant]
  4. ATORVASTATIN [Concomitant]
  5. WARFARIN SODIUM [Concomitant]

REACTIONS (3)
  - HYPOXIA [None]
  - PNEUMONITIS [None]
  - PULMONARY FUNCTION TEST DECREASED [None]
